FAERS Safety Report 5125193-2 (Version None)
Quarter: 2006Q4

REPORT INFORMATION
  Report Type: 
  Country: None (occurrence: None)
  Receive Date: 20061011
  Receipt Date: 20061004
  Transmission Date: 20070319
  Serious: Yes (Hospitalization, Other)
  Sender: FDA-Public Use
  Company Number: DE-BRISTOL-MYERS SQUIBB COMPANY-13533401

PATIENT
  Age: 27 Year
  Sex: Female
  Weight: 60 kg

DRUGS (3)
  1. PRAVASIN [Suspect]
     Route: 048
  2. ISOSORBIDE DINITRATE [Suspect]
     Route: 048
  3. NEBILET [Suspect]
     Route: 048

REACTIONS (3)
  - HYPOKINESIA [None]
  - HYPOTENSION [None]
  - OVERDOSE [None]
